FAERS Safety Report 4626106-X (Version None)
Quarter: 2005Q2

REPORT INFORMATION
  Report Type: 
  Country: None (occurrence: None)
  Receive Date: 20050404
  Receipt Date: 20050323
  Transmission Date: 20051028
  Serious: Yes (Hospitalization)
  Sender: FDA-Public Use
  Company Number: US-BRISTOL-MYERS SQUIBB COMPANY-12909008

PATIENT
  Age: 67 Year
  Sex: Male

DRUGS (8)
  1. CISPLATIN [Suspect]
     Route: 042
     Dates: end: 20040130
  2. FERROUS GLUCONATE [Concomitant]
     Route: 048
     Dates: start: 20031201
  3. PROCHLORPERAZINE EDISYLATE [Concomitant]
     Indication: VOMITING
     Route: 048
     Dates: start: 20031217
  4. FERGON [Concomitant]
  5. COMPAZINE [Concomitant]
  6. REGLAN [Concomitant]
  7. PROCARDIA XL [Concomitant]
  8. MULTI-VITAMIN [Concomitant]

REACTIONS (5)
  - DEHYDRATION [None]
  - NAUSEA [None]
  - ORTHOSTATIC HYPOTENSION [None]
  - SYNCOPE [None]
  - VOMITING [None]
